FAERS Safety Report 8156856-2 (Version None)
Quarter: 2012Q1

REPORT INFORMATION
  Report Type: 
  Country: None (occurrence: None)
  Receive Date: 20120222
  Receipt Date: 20120217
  Transmission Date: 20120608
  Serious: Yes (Other)
  Sender: FDA-Public Use
  Company Number: US-GLAXOSMITHKLINE-A0966391A

PATIENT
  Age: 18 Year
  Sex: Female

DRUGS (4)
  1. LAMICTAL [Suspect]
     Indication: CONVULSION
     Route: 048
     Dates: end: 20100101
  2. VITAMIN B-12 [Concomitant]
  3. FOLIC ACID [Concomitant]
  4. VITAMIN D [Concomitant]

REACTIONS (4)
  - PETIT MAL EPILEPSY [None]
  - NAUSEA [None]
  - STARING [None]
  - DIZZINESS [None]
